FAERS Safety Report 13636938 (Version 1)
Quarter: 2017Q2

REPORT INFORMATION
  Report Type: Spontaneous
  Country: US (occurrence: US)
  Receive Date: 20170531
  Receipt Date: 20170531
  Transmission Date: 20170830
  Serious: No
  Sender: FDA-Public Use
  Company Number: US-ASTELLAS-789248

PATIENT
  Age: 85 Year
  Sex: Female

DRUGS (1)
  1. TARCEVA [Suspect]
     Active Substance: ERLOTINIB HYDROCHLORIDE
     Indication: PRODUCT USED FOR UNKNOWN INDICATION
     Route: 048
     Dates: start: 201104, end: 20110528

REACTIONS (6)
  - Heart rate increased [Unknown]
  - Adverse drug reaction [Unknown]
  - Asthenia [Unknown]
  - Skin exfoliation [Unknown]
  - Hypotension [Unknown]
  - Pruritus [Unknown]

NARRATIVE: CASE EVENT DATE: 20110523
